FAERS Safety Report 9416735 (Version 1)
Quarter: 2013Q3

REPORT INFORMATION
  Report Type: Spontaneous
  Country: CA (occurrence: None)
  Receive Date: 20130719
  Receipt Date: 20130719
  Transmission Date: 20140515
  Serious: Yes (Hospitalization, Other)
  Sender: FDA-Public Use
  Company Number: 2013CA0291

PATIENT
  Sex: Female

DRUGS (6)
  1. ANAKINRA [Suspect]
     Indication: STILL^S DISEASE ADULT ONSET
     Dates: start: 20021216
  2. PREDNISONE (PREDNISONE)V(PREDNISONE) [Concomitant]
  3. BOSENTAN (BOSENTAN)(BOSENTAN) [Concomitant]
  4. CYCLOSPORINE (CICLOSPORIN) (CICLOSOPORIN) [Concomitant]
  5. DEXAMETHASONE (DEXAMETHASONE) (DEXAMETHASONE) [Concomitant]
  6. SILDENAFIL [Concomitant]

REACTIONS (15)
  - Dyspnoea [None]
  - Hyperhidrosis [None]
  - Cough [None]
  - Pyrexia [None]
  - Lung infiltration [None]
  - Pulmonary hypertension [None]
  - Herpes zoster [None]
  - Blood alkaline phosphatase increased [None]
  - Blood lactate dehydrogenase increased [None]
  - Alanine aminotransferase increased [None]
  - Ascites [None]
  - Pericardial effusion [None]
  - Histiocytosis haematophagic [None]
  - Hepatic steatosis [None]
  - Autoimmune hepatitis [None]
